FAERS Safety Report 18574070 (Version 1)
Quarter: 2020Q4

REPORT INFORMATION
  Report Type: Spontaneous
  Country: US (occurrence: US)
  Receive Date: 20201203
  Receipt Date: 20201203
  Transmission Date: 20210114
  Serious: No
  Sender: FDA-Public Use
  Company Number: US-AMNEAL PHARMACEUTICALS-2019-AMRX-02794

PATIENT

DRUGS (1)
  1. RANITIDINE. [Suspect]
     Active Substance: RANITIDINE
     Indication: PRODUCT USED FOR UNKNOWN INDICATION
     Dosage: 150 MILLIGRAM
     Route: 065
     Dates: start: 20120601

REACTIONS (7)
  - Fatigue [Unknown]
  - Dizziness [Unknown]
  - Headache [Unknown]
  - Abdominal distension [Unknown]
  - Myalgia [Unknown]
  - Constipation [Unknown]
  - Abdominal pain upper [Unknown]
